FAERS Safety Report 15849401 (Version 1)
Quarter: 2019Q1

REPORT INFORMATION
  Report Type: Report from Study
  Country: None (occurrence: US)
  Receive Date: 20190121
  Receipt Date: 20190121
  Transmission Date: 20190417
  Serious: Yes (Hospitalization, Other)
  Sender: FDA-Public Use
  Company Number: US-ABBVIE-19S-163-2627796-00

PATIENT
  Sex: Female

DRUGS (1)
  1. LUPRON [Suspect]
     Active Substance: LEUPROLIDE ACETATE
     Indication: PRODUCT USED FOR UNKNOWN INDICATION
     Route: 050

REACTIONS (8)
  - Transfusion [Unknown]
  - Liver transplant [Unknown]
  - Uterine polyp [Unknown]
  - Menstruation irregular [Unknown]
  - Colitis ulcerative [Unknown]
  - Oligomenorrhoea [Unknown]
  - Polycystic ovaries [Unknown]
  - Uterine dilation and curettage [Unknown]
